FAERS Safety Report 19984788 (Version 1)
Quarter: 2021Q4

REPORT INFORMATION
  Report Type: Spontaneous
  Country: US (occurrence: US)
  Receive Date: 20211022
  Receipt Date: 20211022
  Transmission Date: 20220303
  Serious: Yes (Life-Threatening)
  Sender: FDA-Public Use
  Company Number: None

PATIENT
  Age: 54 Year
  Sex: Male
  Weight: 90.3 kg

DRUGS (22)
  1. ACTEMRA [Suspect]
     Active Substance: TOCILIZUMAB
     Indication: COVID-19
     Dosage: ?          OTHER FREQUENCY:X1;
     Route: 040
     Dates: start: 20211010, end: 20211010
  2. Etomidate 20mg IV x 1 [Concomitant]
     Dates: start: 20211009, end: 20211009
  3. Succinylcholine 100mg IV x1 [Concomitant]
     Dates: start: 20211009, end: 20211009
  4. Carvedilol 25mg PO/GT bid [Concomitant]
     Dates: start: 20211012
  5. PROPOFOL [Concomitant]
     Active Substance: PROPOFOL
     Dates: start: 20211009, end: 20211009
  6. FENTANYL [Concomitant]
     Active Substance: FENTANYL
     Dates: start: 20211009, end: 20211019
  7. DEXAMETHASONE [Concomitant]
     Active Substance: DEXAMETHASONE
     Dates: start: 20211009, end: 20211019
  8. Furosemide IV [Concomitant]
     Dates: start: 20211009
  9. DEXMEDETOMIDINE [Concomitant]
     Active Substance: DEXMEDETOMIDINE
     Dates: start: 20211009, end: 20211009
  10. NOREPINEPHRINE [Concomitant]
     Active Substance: NOREPINEPHRINE
     Dates: start: 20211009, end: 20211010
  11. Chlorhexidine gluconate po [Concomitant]
     Dates: start: 20211009, end: 20211018
  12. Enoxaparin 30mg sq bid [Concomitant]
     Dates: start: 20211009
  13. Pantoprazole 40mg IV q12 [Concomitant]
     Dates: start: 20211009
  14. Piperacillin/tazobactam 3.375 gm IV q8 [Concomitant]
     Dates: start: 20211009
  15. VANCOMYCIN HYDROCHLORIDE [Concomitant]
     Active Substance: VANCOMYCIN HYDROCHLORIDE
     Dates: start: 20211009
  16. Insulin glargine sq [Concomitant]
     Dates: start: 20211011, end: 20211017
  17. Loperamide PO/GT q4h prn [Concomitant]
     Dates: start: 20211012
  18. Fentanyl IV q4h prn [Concomitant]
     Dates: start: 20211019
  19. Potassium chloride IV/PO -intermittent doses [Concomitant]
  20. Zinc sulfate 220mg PO/GT TID [Concomitant]
     Dates: start: 20211011
  21. Ascorbic acid 1000mg po/GT daily [Concomitant]
     Dates: start: 20211011
  22. Acetaminophen PO/GT q4h prn [Concomitant]
     Dates: start: 20211009

REACTIONS (4)
  - Pyrexia [None]
  - Abdominal distension [None]
  - Pneumoperitoneum [None]
  - Large intestine perforation [None]

NARRATIVE: CASE EVENT DATE: 20211017
